FAERS Safety Report 9522642 (Version 1)
Quarter: 2013Q3

REPORT INFORMATION
  Report Type: Spontaneous
  Country: PL (occurrence: PL)
  Receive Date: 20130913
  Receipt Date: 20130913
  Transmission Date: 20140515
  Serious: Yes (Other)
  Sender: FDA-Public Use
  Company Number: PL-PFIZER INC-2013255140

PATIENT
  Age: 26 Year
  Sex: Female

DRUGS (3)
  1. SILDENAFIL CITRATE [Suspect]
     Indication: PULMONARY ARTERIAL HYPERTENSION
     Dosage: 50 MG, 3X/DAY
     Dates: start: 201105
  2. TREPROSTINOL [Suspect]
     Dosage: UNK
     Dates: start: 201105
  3. ILOPROST [Suspect]

REACTIONS (7)
  - Pulmonary hypertension [Unknown]
  - Dyspnoea [Unknown]
  - Chest pain [Unknown]
  - Pulmonary artery aneurysm [Unknown]
  - Vascular compression [Unknown]
  - Coronary artery disease [Unknown]
  - Off label use [Unknown]
